FAERS Safety Report 4331258-5 (Version None)
Quarter: 2004Q2

REPORT INFORMATION
  Report Type: 
  Country: None (occurrence: None)
  Receive Date: 20040402
  Receipt Date: 20040322
  Transmission Date: 20050107
  Serious: Yes (Hospitalization)
  Sender: FDA-Public Use
  Company Number: FLUV00203001219

PATIENT
  Age: 37 Year
  Sex: Male
  Weight: 113.3993 kg

DRUGS (8)
  1. LUVOX [Suspect]
     Indication: ANXIETY
     Dosage: 100 MG BID PO
     Route: 048
     Dates: start: 19970101
  2. LUVOX [Suspect]
     Indication: DEPRESSION
     Dosage: 100 MG BID PO
     Route: 048
     Dates: start: 19970101
  3. LUVOX [Suspect]
     Indication: OBSESSIVE-COMPULSIVE DISORDER
     Dosage: 100 MG BID PO
     Route: 048
     Dates: start: 19970101
  4. FLUVOXAMINE MALEATE [Suspect]
     Indication: ANXIETY
     Dosage: 100 MG BID PO
     Route: 048
  5. FLUVOXAMINE MALEATE [Suspect]
     Indication: DEPRESSION
     Dosage: 100 MG BID PO
     Route: 048
  6. FLUVOXAMINE MALEATE [Suspect]
     Indication: OBSESSIVE-COMPULSIVE DISORDER
     Dosage: 100 MG BID PO
     Route: 048
  7. ZYPREXA [Suspect]
     Indication: OBSESSIVE THOUGHTS
     Dosage: 5 MG QD PO
     Route: 048
     Dates: start: 19980101
  8. EFFEXOR [Concomitant]

REACTIONS (14)
  - ANGER [None]
  - ANTISOCIAL BEHAVIOUR [None]
  - ANXIETY [None]
  - COMPULSIONS [None]
  - CONFUSIONAL STATE [None]
  - DEPRESSION [None]
  - DRUG INTOLERANCE [None]
  - DRUG WITHDRAWAL SYNDROME [None]
  - IRRITABILITY [None]
  - MANIA [None]
  - PERSONALITY CHANGE [None]
  - PHARMACEUTICAL PRODUCT COMPLAINT [None]
  - SUICIDAL IDEATION [None]
  - WEIGHT INCREASED [None]
